FAERS Safety Report 18908704 (Version 1)
Quarter: 2021Q1

REPORT INFORMATION
  Report Type: Spontaneous
  Country: US (occurrence: US)
  Receive Date: 20210217
  Receipt Date: 20210217
  Transmission Date: 20210420
  Serious: Yes (Hospitalization)
  Sender: FDA-Public Use
  Company Number: None

PATIENT
  Age: 67 Year
  Sex: Male
  Weight: 167.8 kg

DRUGS (1)
  1. BAMLANIVIMAB. [Suspect]
     Active Substance: BAMLANIVIMAB
     Indication: COVID-19
     Dosage: ?          OTHER FREQUENCY:ONCE;?
     Route: 042
     Dates: start: 20210215, end: 20210215

REACTIONS (6)
  - Acute kidney injury [None]
  - Chest pain [None]
  - Troponin increased [None]
  - Electrocardiogram ST segment depression [None]
  - Myocardial ischaemia [None]
  - Atrial fibrillation [None]

NARRATIVE: CASE EVENT DATE: 20210215
